FAERS Safety Report 5171575-2 (Version None)
Quarter: 2006Q4

REPORT INFORMATION
  Report Type: 
  Country: None (occurrence: None)
  Receive Date: 20061205
  Receipt Date: 20061128
  Transmission Date: 20070319
  Serious: Yes (Death, Hospitalization)
  Sender: FDA-Public Use
  Company Number: 163-21880-06090692

PATIENT
  Age: 63 Year
  Sex: Male

DRUGS (10)
  1. REVLIMID [Suspect]
     Indication: MULTIPLE MYELOMA
     Dosage: 25 MG, QD, ORAL
     Route: 048
     Dates: start: 20060202, end: 20060817
  2. ZOMETA [Concomitant]
  3. MORPHINE [Concomitant]
  4. ATIVAN [Concomitant]
  5. SPECTRACEF (CEFDITOREN) [Concomitant]
  6. DECADRON [Concomitant]
  7. CARDIZEM [Concomitant]
  8. DIGOXIN [Concomitant]
  9. PROTONIX [Concomitant]
  10. ASPIRIN [Concomitant]

REACTIONS (3)
  - BONE MARROW FAILURE [None]
  - DISEASE PROGRESSION [None]
  - HEPATIC FAILURE [None]
